FAERS Safety Report 26064218 (Version 1)
Quarter: 2025Q4

REPORT INFORMATION
  Report Type: Spontaneous
  Country: EU (occurrence: EU)
  Receive Date: 20251119
  Receipt Date: 20251119
  Transmission Date: 20260118
  Serious: Yes (Death, Other)
  Sender: RANBAXY
  Company Number: EU-SUN PHARMACEUTICAL INDUSTRIES INC-2025R1-537065

PATIENT
  Age: 32 Year
  Sex: Male

DRUGS (2)
  1. LORAZEPAM [Suspect]
     Active Substance: LORAZEPAM
     Indication: Product used for unknown indication
     Dosage: UNK (100G APPROX)
     Route: 065
  2. SODIUM NITRITE [Suspect]
     Active Substance: SODIUM NITRITE
     Indication: Product used for unknown indication
     Dosage: UNK (100G APPROX)
     Route: 065

REACTIONS (7)
  - Suicide attempt [Fatal]
  - Loss of consciousness [Fatal]
  - Sinus tachycardia [Fatal]
  - Cardiac arrest [Fatal]
  - Hypoxia [Fatal]
  - Pulseless electrical activity [Fatal]
  - Methaemoglobinaemia [Fatal]
